FAERS Safety Report 14369192 (Version 1)
Quarter: 2018Q1

REPORT INFORMATION
  Report Type: Spontaneous
  Country: FR (occurrence: FR)
  Receive Date: 20180109
  Receipt Date: 20180109
  Transmission Date: 20180509
  Serious: Yes (Hospitalization)
  Sender: FDA-Public Use
  Company Number: FR-BEH-2018086542

PATIENT
  Age: 1 Year
  Sex: Male
  Weight: 8.9 kg

DRUGS (4)
  1. RAPAMUNE [Suspect]
     Active Substance: SIROLIMUS
     Indication: AUTOIMMUNE HAEMOLYTIC ANAEMIA
     Dosage: 0.5 MG/KG, UNK
     Route: 048
     Dates: start: 20140225
  2. PRIVIGEN [Suspect]
     Active Substance: HUMAN IMMUNOGLOBULIN G
     Indication: HYPOGAMMAGLOBULINAEMIA
     Dosage: 1 DF, QMT
     Route: 042
     Dates: start: 20140225, end: 20150424
  3. SOLUPRED                           /00016201/ [Suspect]
     Active Substance: PREDNISOLONE
     Indication: AUTOIMMUNE HAEMOLYTIC ANAEMIA
     Dosage: 0.3 MG/KG, UNK
     Route: 048
     Dates: start: 20140206, end: 20160611
  4. MABTHERA [Suspect]
     Active Substance: RITUXIMAB
     Indication: AUTOIMMUNE HAEMOLYTIC ANAEMIA
     Route: 042
     Dates: start: 20140213, end: 20140220

REACTIONS (1)
  - Gastroenteritis aeromonas [Recovered/Resolved]

NARRATIVE: CASE EVENT DATE: 20141106
